FAERS Safety Report 9176587 (Version 1)
Quarter: 2013Q1

REPORT INFORMATION
  Report Type: Spontaneous
  Country: US (occurrence: None)
  Receive Date: 20130320
  Receipt Date: 20130320
  Transmission Date: 20140127
  Serious: No
  Sender: FDA-Public Use
  Company Number: None

PATIENT
  Age: 72 Year
  Sex: Male
  Weight: 78.93 kg

DRUGS (1)
  1. WELCHOL [Suspect]
     Dosage: 1 PACKET 1/DAY
     Dates: start: 20130214, end: 20130306

REACTIONS (1)
  - Diverticulitis [None]
